FAERS Safety Report 7412706-0 (Version None)
Quarter: 2011Q2

REPORT INFORMATION
  Report Type: 
  Country: None (occurrence: None)
  Receive Date: 20110413
  Receipt Date: 20110407
  Transmission Date: 20111010
  Serious: Yes (Hospitalization)
  Sender: FDA-Public Use
  Company Number: A0815541A

PATIENT
  Sex: Female
  Weight: 83.6 kg

DRUGS (8)
  1. ASPIRIN [Concomitant]
  2. COREG [Concomitant]
  3. BENICAR [Concomitant]
  4. AVANDIA [Suspect]
     Indication: DIABETES MELLITUS
     Dosage: 4MG TWICE PER DAY
     Route: 048
     Dates: start: 20050301
  5. AMARYL [Concomitant]
  6. AVANDAMET [Suspect]
     Indication: DIABETES MELLITUS
     Route: 048
     Dates: start: 20050302, end: 20050101
  7. LANOXIN [Concomitant]
  8. SPIRONOLACTONE [Concomitant]

REACTIONS (3)
  - CARDIAC FAILURE CONGESTIVE [None]
  - ANGINA PECTORIS [None]
  - CORONARY ARTERY DISEASE [None]
